FAERS Safety Report 26117233 (Version 1)
Quarter: 2025Q4

REPORT INFORMATION
  Report Type: Spontaneous
  Country: JP (occurrence: JP)
  Receive Date: 20251203
  Receipt Date: 20251203
  Transmission Date: 20260117
  Serious: Yes (Hospitalization, Other)
  Sender: MERCK SHARP & DOHME LLC
  Company Number: JP-009507513-2354710

PATIENT
  Age: 8 Decade
  Sex: Male

DRUGS (2)
  1. PEMBROLIZUMAB [Suspect]
     Active Substance: PEMBROLIZUMAB
     Indication: Bladder cancer
     Dosage: TIME INTERVAL: CYCLICAL
  2. ENFORTUMAB VEDOTIN [Suspect]
     Active Substance: ENFORTUMAB VEDOTIN
     Indication: Bladder cancer
     Dosage: TIME INTERVAL: CYCLICAL

REACTIONS (11)
  - Cytokine release syndrome [Unknown]
  - Malaise [Unknown]
  - Pyrexia [Unknown]
  - Blood pressure decreased [Unknown]
  - Hospitalisation [Unknown]
  - Ascites [Unknown]
  - Bladder perforation [Unknown]
  - Bladder catheterisation [Unknown]
  - Intensive care [Unknown]
  - Body temperature abnormal [Unknown]
  - White blood cell disorder [Unknown]
